FAERS Safety Report 17066867 (Version 3)
Quarter: 2022Q2

REPORT INFORMATION
  Report Type: Spontaneous
  Country: US (occurrence: US)
  Receive Date: 20191122
  Receipt Date: 20220419
  Transmission Date: 20220720
  Serious: Yes (Hospitalization)
  Sender: FDA-Public Use
  Company Number: US-PFIZER INC-2019436168

PATIENT
  Age: 78 Year
  Sex: Female
  Weight: 49.887 kg

DRUGS (4)
  1. XELJANZ XR [Suspect]
     Active Substance: TOFACITINIB CITRATE
     Indication: Rheumatoid arthritis
     Dosage: 11 MG, 1X/DAY
     Route: 048
  2. AMILORIDE [Concomitant]
     Active Substance: AMILORIDE
     Dosage: 5 MG, 1X/DAY
  3. CELECOXIB [Concomitant]
     Active Substance: CELECOXIB
     Dosage: 200 MG, 1X/DAY
  4. PROLIA [Concomitant]
     Active Substance: DENOSUMAB
     Dosage: UNK, (EVERY 6 MONTH)

REACTIONS (2)
  - Lower limb fracture [Not Recovered/Not Resolved]
  - Hypertension [Unknown]
